FAERS Safety Report 4949410-4 (Version None)
Quarter: 2006Q1

REPORT INFORMATION
  Report Type: 
  Country: None (occurrence: None)
  Receive Date: 20060321
  Receipt Date: 20060216
  Transmission Date: 20060701
  Serious: Yes (Death, Hospitalization)
  Sender: FDA-Public Use
  Company Number: DE-AMGEN-UK169503

PATIENT
  Sex: Male
  Weight: 60 kg

DRUGS (6)
  1. KEPIVANCE [Suspect]
     Indication: MUCOSAL INFLAMMATION
     Route: 042
     Dates: start: 20060101, end: 20060112
  2. FLUCONAZOLE [Concomitant]
     Route: 042
     Dates: start: 20060101, end: 20060129
  3. CO-TRIMOXAZOLE [Concomitant]
     Route: 042
     Dates: start: 20060110
  4. VALTREX [Concomitant]
     Route: 042
     Dates: start: 20060110
  5. PIPERACILLIN [Concomitant]
     Route: 042
     Dates: start: 20060110, end: 20060112
  6. SANDIMMUNE [Concomitant]
     Route: 042
     Dates: start: 20060109, end: 20060129

REACTIONS (7)
  - CAPILLARY LEAK SYNDROME [None]
  - FLUID RETENTION [None]
  - LUNG INFILTRATION [None]
  - MUCOSAL INFLAMMATION [None]
  - PNEUMONIA [None]
  - RESPIRATORY FAILURE [None]
  - WEIGHT INCREASED [None]
